FAERS Safety Report 9166061 (Version 3)
Quarter: 2013Q2

REPORT INFORMATION
  Report Type: Spontaneous
  Country: FR (occurrence: None)
  Receive Date: 20130301
  Receipt Date: 20130417
  Transmission Date: 20140414
  Serious: Yes (Hospitalization, Other)
  Sender: FDA-Public Use
  Company Number: 2013MPI00085

PATIENT
  Age: 49 Year
  Sex: Male

DRUGS (7)
  1. BRENTUXIMAB VEDOTIN [Suspect]
     Indication: HODGKIN^S DISEASE REFRACTORY
     Route: 042
     Dates: start: 20130104, end: 20130212
  2. DOLIPRANE (PARACETAMOL) [Concomitant]
  3. EUPANTOL [Concomitant]
  4. LYRICA (PREGABALIN) [Concomitant]
  5. VALACICLOVIR (VALACICLOVIR HYDROCHLORIDE) [Concomitant]
  6. SKENAN (MORPHINE SULFATE) [Concomitant]
  7. SEVREDOL (MORPHINE SULFATE) [Concomitant]

REACTIONS (1)
  - Acute febrile neutrophilic dermatosis [None]
